FAERS Safety Report 20249252 (Version 6)
Quarter: 2022Q4

REPORT INFORMATION
  Report Type: Spontaneous
  Country: US (occurrence: US)
  Receive Date: 20211229
  Receipt Date: 20221011
  Transmission Date: 20230113
  Serious: No
  Sender: FDA-Public Use
  Company Number: US-PFIZER INC-202101119739

PATIENT
  Age: 81 Year
  Sex: Female
  Weight: 100.69 kg

DRUGS (7)
  1. IBRANCE [Suspect]
     Active Substance: PALBOCICLIB
     Indication: Bone cancer metastatic
     Dosage: 100 MG, CYCLIC (21 DAYS AND THEN IS OFF FOR 7 DAYS)
     Route: 048
  2. IBRANCE [Suspect]
     Active Substance: PALBOCICLIB
     Indication: Neoplasm malignant
     Dosage: 100 MG
     Dates: start: 20210916
  3. IBRANCE [Suspect]
     Active Substance: PALBOCICLIB
     Indication: Breast cancer metastatic
     Dosage: 75 MG
  4. IBRANCE [Suspect]
     Active Substance: PALBOCICLIB
     Indication: Breast cancer female
     Dosage: 100 MG
     Dates: start: 20220221
  5. IBRANCE [Suspect]
     Active Substance: PALBOCICLIB
     Indication: Breast cancer stage IV
     Dosage: 100 MG
     Dates: start: 20220809
  6. LEVOTHYROXINE [Concomitant]
     Active Substance: LEVOTHYROXINE
     Indication: Thyroid disorder
     Dosage: UNK, (WAS TAKING 100 AND IS NOW TAKING 112)
  7. CHOLECALCIFEROL [Concomitant]
     Active Substance: CHOLECALCIFEROL
     Dosage: UNK

REACTIONS (23)
  - Off label use [Unknown]
  - Product dose omission issue [Unknown]
  - Intentional dose omission [Unknown]
  - Lymphoedema [Unknown]
  - Weight increased [Unknown]
  - Nervousness [Unknown]
  - Limb deformity [Unknown]
  - Full blood count abnormal [Unknown]
  - Blood oestrogen increased [Unknown]
  - Fat tissue increased [Unknown]
  - Depression [Unknown]
  - Frustration tolerance decreased [Unknown]
  - Stress [Unknown]
  - Peripheral swelling [Unknown]
  - Movement disorder [Unknown]
  - Muscle spasms [Unknown]
  - Fluid retention [Unknown]
  - Mental disorder [Unknown]
  - Weight decreased [Unknown]
  - Anxiety [Unknown]
  - Sleep disorder [Unknown]
  - Vitamin B12 decreased [Unknown]
  - Pruritus [Not Recovered/Not Resolved]

NARRATIVE: CASE EVENT DATE: 20210101
